FAERS Safety Report 21422290 (Version 1)
Quarter: 2022Q4

REPORT INFORMATION
  Report Type: Spontaneous
  Country: US (occurrence: None)
  Receive Date: 20221006
  Receipt Date: 20221006
  Transmission Date: 20230113
  Serious: Yes (Death)
  Sender: FDA-Public Use
  Company Number: None

PATIENT
  Age: 93 Year
  Sex: Male
  Weight: 80.1 kg

DRUGS (11)
  1. CELEBREX [Suspect]
     Active Substance: CELECOXIB
     Indication: Procedural pain
     Dosage: OTHER QUANTITY : 1 TABLET(S);?FREQUENCY : DAILY;?
     Dates: start: 20220919, end: 20221002
  2. LISINOPRIL [Concomitant]
  3. TAMSULOSIN [Concomitant]
     Active Substance: TAMSULOSIN
  4. CELECOXIB [Concomitant]
     Active Substance: CELECOXIB
  5. METROPOL TARTRATE [Concomitant]
  6. ATIVAN [Concomitant]
     Active Substance: LORAZEPAM
  7. BENZONATATE [Concomitant]
     Active Substance: BENZONATATE
  8. AREDS2 + VITAMINS [Concomitant]
  9. SENNOSIDES-DUCOSATE SODIUM [Concomitant]
  10. ACETAMINOPHEN [Concomitant]
     Active Substance: ACETAMINOPHEN
  11. ASPIRIN [Concomitant]
     Active Substance: ASPIRIN

REACTIONS (4)
  - Rash [None]
  - Blood urea increased [None]
  - Blood creatinine increased [None]
  - Hospice care [None]

NARRATIVE: CASE EVENT DATE: 20221002
